FAERS Safety Report 24630938 (Version 2)
Quarter: 2024Q4

REPORT INFORMATION
  Report Type: Report from Study
  Country: US (occurrence: US)
  Receive Date: 20241118
  Receipt Date: 20241128
  Transmission Date: 20250115
  Serious: Yes (Death)
  Sender: INSMED
  Company Number: US-INSMED, INC.-2024-04491-US

PATIENT
  Sex: Female

DRUGS (3)
  1. ARIKAYCE [Suspect]
     Active Substance: AMIKACIN
     Indication: Mycobacterium avium complex infection
     Dosage: 590 MILLIGRAM, QD
     Route: 055
     Dates: start: 20220611, end: 2024
  2. LINEZOLID [Concomitant]
     Active Substance: LINEZOLID
     Indication: Mycobacterium avium complex infection
     Dosage: UNK, UNK
     Route: 065
  3. NUZYRA [Concomitant]
     Active Substance: OMADACYCLINE
     Indication: Mycobacterium avium complex infection
     Dosage: UNK, UNK
     Route: 065

REACTIONS (1)
  - Death [Fatal]

NARRATIVE: CASE EVENT DATE: 20240101
